FAERS Safety Report 9184758 (Version 1)
Quarter: 2013Q1

REPORT INFORMATION
  Report Type: Spontaneous
  Country: US (occurrence: US)
  Receive Date: 20130325
  Receipt Date: 20130325
  Transmission Date: 20140127
  Serious: Yes (Other)
  Sender: FDA-Public Use
  Company Number: US-CUBIST PHARMACEUTICAL, INC.-2013CBST000212

PATIENT
  Age: 55 Year
  Sex: Female

DRUGS (2)
  1. CUBICIN [Suspect]
     Indication: CELLULITIS
     Dosage: 5 MG/KG, UNK
     Route: 042
  2. CUBICIN [Suspect]
     Indication: OFF LABEL USE

REACTIONS (3)
  - Cellulitis [Unknown]
  - Eosinophilic pneumonia [Unknown]
  - Chills [Unknown]
